FAERS Safety Report 5837114-5 (Version None)
Quarter: 2008Q3

REPORT INFORMATION
  Report Type: 
  Country: None (occurrence: None)
  Receive Date: 20080807
  Receipt Date: 20080731
  Transmission Date: 20090109
  Serious: Yes (Other)
  Sender: FDA-Public Use
  Company Number: US-MERCK-0808USA00065

PATIENT
  Age: 39 Year
  Sex: Female

DRUGS (3)
  1. JANUVIA [Suspect]
     Indication: DIABETES MELLITUS
     Route: 048
     Dates: start: 20061001
  2. JANUVIA [Suspect]
     Route: 048
  3. CHANTIX [Concomitant]
     Route: 065

REACTIONS (1)
  - MYOPIA [None]
